FAERS Safety Report 4936313-4 (Version None)
Quarter: 2006Q1

REPORT INFORMATION
  Report Type: 
  Country: None (occurrence: None)
  Receive Date: 20060127
  Receipt Date: 20051129
  Transmission Date: 20060701
  Serious: Yes (Other)
  Sender: FDA-Public Use
  Company Number: 2005163092

PATIENT
  Age: 59 Year
  Sex: Female
  Weight: 43.9989 kg

DRUGS (7)
  1. LYRICA [Suspect]
     Indication: NEURALGIA
     Dosage: 75 MG (75 MG, 1 IN 1 D),ORAL
     Route: 048
     Dates: start: 20051108, end: 20051108
  2. CELEXA [Concomitant]
  3. NEURONTIN [Concomitant]
  4. RITALIN [Concomitant]
  5. ALL OTHER THERAPEUTIC PRODUCTS (ALL OTHER THERAPEUTIC PRODUCTS) [Concomitant]
  6. ACIPHEX [Concomitant]
  7. KLONOPIN [Concomitant]

REACTIONS (2)
  - HYPERSOMNIA [None]
  - RASH PRURITIC [None]
